FAERS Safety Report 23188139 (Version 1)
Quarter: 2023Q4

REPORT INFORMATION
  Report Type: Report from Study
  Country: US (occurrence: US)
  Receive Date: 20231115
  Receipt Date: 20231115
  Transmission Date: 20240110
  Serious: Yes (Death)
  Sender: FDA-Public Use
  Company Number: US-TAIHOP-2023-009641

PATIENT
  Sex: Female
  Weight: 43.09 kg

DRUGS (1)
  1. LONSURF [Suspect]
     Active Substance: TIPIRACIL HYDROCHLORIDE\TRIFLURIDINE
     Indication: Rectosigmoid cancer
     Dosage: FORM STRENGTH 15 AND 20 MG; CURRENT CYCLE UNKNOWN
     Route: 048
     Dates: start: 20230816

REACTIONS (1)
  - Death [Fatal]
